FAERS Safety Report 22824868 (Version 4)
Quarter: 2024Q1

REPORT INFORMATION
  Report Type: Spontaneous
  Country: ES (occurrence: ES)
  Receive Date: 20230815
  Receipt Date: 20240130
  Transmission Date: 20240410
  Serious: Yes (Other)
  Sender: FDA-Public Use
  Company Number: ES-ELI_LILLY_AND_COMPANY-ES202302005209

PATIENT
  Age: 66 Year
  Sex: Female
  Weight: 79 kg

DRUGS (9)
  1. LOPERAMIDE HYDROCHLORIDE [Suspect]
     Active Substance: LOPERAMIDE HYDROCHLORIDE
     Indication: Product used for unknown indication
     Dosage: UNK UNK, UNKNOWN
     Route: 065
  2. ABEMACICLIB [Suspect]
     Active Substance: ABEMACICLIB
     Indication: Breast cancer metastatic
     Dosage: 150 MG, BID
     Route: 048
  3. ABEMACICLIB [Suspect]
     Active Substance: ABEMACICLIB
     Dosage: 150 MG, BID
     Route: 048
     Dates: start: 20221107
  4. ABEMACICLIB [Suspect]
     Active Substance: ABEMACICLIB
     Dosage: 150 MG, BID
     Route: 048
  5. ABEMACICLIB [Suspect]
     Active Substance: ABEMACICLIB
     Dosage: 150 MG, BID
     Route: 048
  6. LETROZOLE [Suspect]
     Active Substance: LETROZOLE
     Indication: Breast cancer metastatic
     Dosage: 1 DOSAGE FORM, DAILY
     Route: 065
  7. COVID-19 VACCINE NOS [Suspect]
     Active Substance: COVID-19 VACCINE NOS
     Indication: Product used for unknown indication
     Route: 065
  8. ASCORBIC ACID [Concomitant]
     Active Substance: ASCORBIC ACID
     Indication: Prophylaxis
     Route: 065
  9. ENALAPRIL [Concomitant]
     Active Substance: ENALAPRIL
     Indication: Blood pressure abnormal
     Route: 065

REACTIONS (27)
  - Renal impairment [Recovered/Resolved]
  - Cataract [Unknown]
  - Skin wound [Not Recovered/Not Resolved]
  - Pain [Recovering/Resolving]
  - Blood creatinine decreased [Recovered/Resolved]
  - Diarrhoea [Recovered/Resolved]
  - Depressed mood [Not Recovered/Not Resolved]
  - Impaired healing [Not Recovered/Not Resolved]
  - Back pain [Not Recovered/Not Resolved]
  - Skin burning sensation [Recovering/Resolving]
  - Hypersensitivity [Not Recovered/Not Resolved]
  - Rash macular [Recovering/Resolving]
  - Abdominal pain [Recovering/Resolving]
  - Flatulence [Not Recovered/Not Resolved]
  - Constipation [Unknown]
  - Fatigue [Recovering/Resolving]
  - Glomerular filtration rate abnormal [Recovering/Resolving]
  - Pulmonary mass [Unknown]
  - Cough [Recovered/Resolved]
  - Frequent bowel movements [Unknown]
  - Nasopharyngitis [Recovered/Resolved]
  - Decreased appetite [Not Recovered/Not Resolved]
  - Heat exhaustion [Not Recovered/Not Resolved]
  - Anaemia [Recovering/Resolving]
  - Blood creatinine increased [Recovering/Resolving]
  - Hypotension [Recovered/Resolved]
  - Bone pain [Recovering/Resolving]

NARRATIVE: CASE EVENT DATE: 20221101
